FAERS Safety Report 6631739-5 (Version None)
Quarter: 2010Q1

REPORT INFORMATION
  Report Type: 
  Country: None (occurrence: None)
  Receive Date: 20100312
  Receipt Date: 20100301
  Transmission Date: 20100710
  Serious: Yes (Death, Life-Threatening, Hospitalization)
  Sender: FDA-Public Use
  Company Number: GB-NOVOPROD-301022

PATIENT
  Sex: Female
  Weight: 90 kg

DRUGS (4)
  1. LIRAGLUTIDE [Suspect]
     Indication: TYPE 2 DIABETES MELLITUS
     Dosage: 1.2 MG, QD
     Route: 058
     Dates: start: 20091008
  2. METFORMIN [Concomitant]
     Indication: TYPE 2 DIABETES MELLITUS
     Dosage: 3 G, QD
     Route: 048
     Dates: start: 20080101
  3. FUROSEMIDE [Concomitant]
     Dosage: 40 MG, QD
     Route: 048
     Dates: start: 20080301
  4. IBUPROFEN [Concomitant]
     Indication: OSTEOARTHRITIS
     Dosage: 400 MG, UNK
     Route: 048

REACTIONS (4)
  - GASTROENTERITIS [None]
  - HYPOTHERMIA [None]
  - RENAL FAILURE ACUTE [None]
  - SEPSIS [None]
